FAERS Safety Report 5154548-5 (Version None)
Quarter: 2006Q4

REPORT INFORMATION
  Report Type: 
  Country: None (occurrence: None)
  Receive Date: 20061113
  Receipt Date: 20061108
  Transmission Date: 20070319
  Serious: Yes (Death)
  Sender: FDA-Public Use
  Company Number: 056-C5013-06110466

PATIENT
  Age: 51 Year
  Sex: Male

DRUGS (3)
  1. CC-5013 (LENALIDOMIDE) (CAPSULES) [Suspect]
     Indication: MULTIPLE MYELOMA
     Dosage: 25 MG, 1 IN 1 D, ORAL
     Route: 048
     Dates: start: 20060418, end: 20061021
  2. PREVISCAN (FLUINDIONE) [Concomitant]
  3. ARANESP (DARBEOETIN ALFA) [Concomitant]

REACTIONS (1)
  - DEATH [None]
